FAERS Safety Report 20987288 (Version 2)
Quarter: 2022Q3

REPORT INFORMATION
  Report Type: Spontaneous
  Country: US (occurrence: US)
  Receive Date: 20220621
  Receipt Date: 20220720
  Transmission Date: 20221027
  Serious: No
  Sender: FDA-Public Use
  Company Number: US-THERATECHNOLOGIES INC.-2022-THE-TES-000147

PATIENT

DRUGS (1)
  1. EGRIFTA SV [Suspect]
     Active Substance: TESAMORELIN ACETATE
     Indication: Product used for unknown indication
     Dosage: UNK
     Route: 058
     Dates: start: 20220602, end: 20220702

REACTIONS (4)
  - Abdominal mass [Recovered/Resolved]
  - Weight increased [Unknown]
  - Muscle tightness [Unknown]
  - Peripheral swelling [Recovered/Resolved]
